FAERS Safety Report 18054410 (Version 3)
Quarter: 2022Q4

REPORT INFORMATION
  Report Type: Spontaneous
  Country: US (occurrence: US)
  Receive Date: 20200722
  Receipt Date: 20221011
  Transmission Date: 20230113
  Serious: Yes (Other)
  Sender: FDA-Public Use
  Company Number: US-SAARTEMIS-SAC202007170204

PATIENT
  Age: 62 Year
  Sex: Female

DRUGS (1)
  1. ZANTAC [Suspect]
     Active Substance: RANITIDINE HYDROCHLORIDE
     Indication: Product used for unknown indication
     Dosage: 300 MG, QD
     Dates: start: 201008, end: 201102

REACTIONS (4)
  - Ovarian cancer stage III [Not Recovered/Not Resolved]
  - Tonsil cancer [Unknown]
  - Hepatic cancer stage I [Not Recovered/Not Resolved]
  - Bone cancer [Unknown]

NARRATIVE: CASE EVENT DATE: 20170701
